FAERS Safety Report 7287843-4 (Version None)
Quarter: 2011Q1

REPORT INFORMATION
  Report Type: 
  Country: None (occurrence: None)
  Receive Date: 20110211
  Receipt Date: 20110203
  Transmission Date: 20110831
  Serious: No
  Sender: FDA-Public Use
  Company Number: US-PFIZER INC-2011025410

PATIENT
  Sex: Male
  Weight: 74.8 kg

DRUGS (8)
  1. LIPITOR [Suspect]
     Dosage: 80 MG, DAILY
     Route: 048
     Dates: end: 20100901
  2. PLAVIX [Concomitant]
     Dosage: UNK
  3. HYDROCHLOROTHIAZIDE [Concomitant]
     Dosage: UNK
  4. LIPITOR [Suspect]
     Indication: BLOOD CHOLESTEROL INCREASED
     Dosage: 10 MG, 1X/DAY
     Route: 048
  5. LIPITOR [Suspect]
     Dosage: 20 MG, 1X/DAY
     Route: 048
  6. NIFEDIPINE [Concomitant]
     Dosage: 30 MG, UNK
  7. AVODART [Concomitant]
     Indication: PROSTATOMEGALY
     Dosage: UNK
  8. ALISKIREN/VALSARTAN [Concomitant]
     Dosage: UNK

REACTIONS (1)
  - DIARRHOEA [None]
